FAERS Safety Report 20102039 (Version 1)
Quarter: 2021Q4

REPORT INFORMATION
  Report Type: Other
  Country: IT (occurrence: IT)
  Receive Date: 20211123
  Receipt Date: 20211123
  Transmission Date: 20220304
  Serious: Yes (Life-Threatening)
  Sender: FDA-Public Use
  Company Number: IT-CELLTRION HEALTHCARE HUNGARY KFT-2021IT009392

PATIENT

DRUGS (26)
  1. RITUXIMAB [Suspect]
     Active Substance: RITUXIMAB
     Indication: Diffuse large B-cell lymphoma
     Dosage: AFTER 6 CYCLES OF CHOP (CYCLOPHOSPHAMIDE, VINCRISTINE, DOXORUBICIN AND PREDNISONE) THERAPY AND 8 ADM
     Route: 041
  2. RITUXIMAB [Suspect]
     Active Substance: RITUXIMAB
     Indication: Chemotherapy
     Dosage: AFTER 6 CYCLES OF CHOP (CYCLOPHOSPHAMIDE, VINCRISTINE, DOXORUBICIN AND PREDNISONE) THERAPY AND 8 ADM
     Route: 041
  3. RITUXIMAB [Suspect]
     Active Substance: RITUXIMAB
     Indication: B-cell lymphoma
     Dosage: AFTER 6 CYCLES OF CHOP (CYCLOPHOSPHAMIDE, VINCRISTINE, DOXORUBICIN AND PREDNISONE) THERAPY AND 8 ADM
     Route: 041
  4. RITUXIMAB [Suspect]
     Active Substance: RITUXIMAB
     Dosage: AFTER 6 CYCLES OF CHOP (CYCLOPHOSPHAMIDE, VINCRISTINE, DOXORUBICIN AND PREDNISONE) THERAPY AND 8 ADM
     Route: 041
  5. RITUXIMAB [Suspect]
     Active Substance: RITUXIMAB
     Dosage: UNK
     Route: 041
  6. RITUXIMAB [Suspect]
     Active Substance: RITUXIMAB
     Dosage: AFTER 6 CYCLES OF CHOP (CYCLOPHOSPHAMIDE, VINCRISTINE, DOXORUBICIN AND PREDNISONE) THERAPY AND 8 ADM
     Route: 041
  7. RITUXIMAB [Suspect]
     Active Substance: RITUXIMAB
     Dosage: AFTER 6 CYCLES OF CHOP (CYCLOPHOSPHAMIDE, VINCRISTINE, DOXORUBICIN AND PREDNISONE) THERAPY AND 8 ADM
     Route: 041
  8. RITUXIMAB [Suspect]
     Active Substance: RITUXIMAB
     Dosage: AFTER 6 CYCLES OF CHOP (CYCLOPHOSPHAMIDE, VINCRISTINE, DOXORUBICIN AND PREDNISONE) THERAPY AND 8 ADM
     Route: 041
  9. RITUXIMAB [Suspect]
     Active Substance: RITUXIMAB
     Dosage: AFTER 6 CYCLES OF CHOP (CYCLOPHOSPHAMIDE, VINCRISTINE, DOXORUBICIN AND PREDNISONE) THERAPY AND 8 ADM
     Route: 041
  10. DOXORUBICIN [Suspect]
     Active Substance: DOXORUBICIN
     Indication: Diffuse large B-cell lymphoma
     Dosage: AFTER 6 CYCLES OF CHOP (CYCLOPHOSPHAMIDE, VINCRISTINE, DOXORUBICIN AND PREDNISONE) THERAPY AND 8 ADM
     Route: 065
  11. VINCRISTINE [Suspect]
     Active Substance: VINCRISTINE
     Indication: Diffuse large B-cell lymphoma
     Dosage: AFTER 6 CYCLES OF CHOP (CYCLOPHOSPHAMIDE, VINCRISTINE, DOXORUBICIN AND PREDNISONE) THERAPY AND 8 ADM
     Route: 065
  12. METHOTREXATE [Suspect]
     Active Substance: METHOTREXATE
     Indication: Nervous system disorder prophylaxis
     Route: 065
  13. CISPLATIN [Suspect]
     Active Substance: CISPLATIN
     Indication: B-cell lymphoma
     Route: 065
  14. PREDNISONE [Suspect]
     Active Substance: PREDNISONE
     Indication: Diffuse large B-cell lymphoma
     Dosage: AFTER 6 CYCLES OF CHOP (CYCLOPHOSPHAMIDE, VINCRISTINE, DOXORUBICIN AND PREDNISONE) THERAPY AND 8 ADM
     Route: 065
  15. ETOPOSIDE [Suspect]
     Active Substance: ETOPOSIDE
     Indication: B-cell lymphoma
     Dosage: UNK
     Route: 065
  16. ETOPOSIDE [Suspect]
     Active Substance: ETOPOSIDE
     Indication: Chemotherapy
  17. CYCLOPHOSPHAMIDE [Suspect]
     Active Substance: CYCLOPHOSPHAMIDE
     Indication: Diffuse large B-cell lymphoma
     Route: 065
  18. VINORELBINE [Suspect]
     Active Substance: VINORELBINE TARTRATE
     Indication: Chemotherapy
     Dosage: UNK
     Route: 065
  19. VINORELBINE [Suspect]
     Active Substance: VINORELBINE TARTRATE
     Indication: B-cell lymphoma
  20. DEXAMETHASONE [Suspect]
     Active Substance: DEXAMETHASONE
     Indication: Nervous system disorder prophylaxis
     Dosage: UNK
     Route: 065
  21. DEXAMETHASONE [Suspect]
     Active Substance: DEXAMETHASONE
     Indication: B-cell lymphoma
  22. CYTARABINE [Suspect]
     Active Substance: CYTARABINE
     Indication: B-cell lymphoma
     Dosage: UNK
     Route: 065
  23. CARMUSTINE [Suspect]
     Active Substance: CARMUSTINE
     Indication: B-cell lymphoma
     Dosage: UNK
     Route: 065
  24. MELPHALAN [Suspect]
     Active Substance: MELPHALAN
     Indication: B-cell lymphoma
     Dosage: UNK
     Route: 065
  25. IFOSFAMIDE [Suspect]
     Active Substance: IFOSFAMIDE
     Indication: B-cell lymphoma
     Dosage: UNK
     Route: 065
  26. IFOSFAMIDE [Suspect]
     Active Substance: IFOSFAMIDE
     Indication: Chemotherapy

REACTIONS (5)
  - Cold type haemolytic anaemia [Recovered/Resolved]
  - Thrombocytopenia [Recovered/Resolved]
  - Non-Hodgkin^s lymphoma recurrent [Recovered/Resolved]
  - Disease progression [Recovered/Resolved]
  - Staphylococcal infection [Recovered/Resolved]

NARRATIVE: CASE EVENT DATE: 20180301
